FAERS Safety Report 6765525-2 (Version None)
Quarter: 2010Q2

REPORT INFORMATION
  Report Type: 
  Country: None (occurrence: None)
  Receive Date: 20100610
  Receipt Date: 20100610
  Transmission Date: 20101027
  Serious: No
  Sender: FDA-Public Use
  Company Number: None

PATIENT
  Sex: Male

DRUGS (2)
  1. TAXOTERE [Suspect]
     Indication: NON-SMALL CELL LUNG CANCER
     Dosage: 120MG Q2WKS IV
     Route: 042
     Dates: start: 20100609
  2. TAXOTERE [Suspect]
     Dates: start: 20100609

REACTIONS (5)
  - DYSPNOEA [None]
  - HEART RATE INCREASED [None]
  - HYPOTENSION [None]
  - OXYGEN SATURATION DECREASED [None]
  - SPEECH DISORDER [None]
